FAERS Safety Report 6741477-6 (Version None)
Quarter: 2010Q2

REPORT INFORMATION
  Report Type: 
  Country: None (occurrence: None)
  Receive Date: 20100526
  Receipt Date: 20100517
  Transmission Date: 20101027
  Serious: Yes (Hospitalization)
  Sender: FDA-Public Use
  Company Number: PHHY2010FR32398

PATIENT
  Sex: Female
  Weight: 55 kg

DRUGS (7)
  1. TEGRETOL [Suspect]
     Indication: PARTIAL SEIZURES
     Dosage: 1 G, QD
     Dates: start: 20040101
  2. TEGRETOL [Suspect]
     Dosage: DOSE INCREASED
     Dates: start: 20090701
  3. KEPPRA [Suspect]
     Indication: PARTIAL SEIZURES
     Dosage: 3 G, QD
     Dates: start: 20040101
  4. KEPPRA [Suspect]
     Dosage: 2.5 G, QD
  5. KEPPRA [Suspect]
     Dosage: 2.25 G, QD
  6. AVLOCARDYL [Suspect]
     Indication: MIGRAINE
     Dosage: 160 MG, QD
     Dates: start: 20080101
  7. AVLOCARDYL [Suspect]
     Dosage: DOSE DECREASED

REACTIONS (5)
  - NEUROPATHY PERIPHERAL [None]
  - PAIN [None]
  - PAIN IN EXTREMITY [None]
  - PARAESTHESIA [None]
  - SENSORY LOSS [None]
